FAERS Safety Report 9520499 (Version 1)
Quarter: 2013Q3

REPORT INFORMATION
  Report Type: Spontaneous
  Country: FR (occurrence: FR)
  Receive Date: 20130913
  Receipt Date: 20130913
  Transmission Date: 20140515
  Serious: Yes (Hospitalization)
  Sender: FDA-Public Use
  Company Number: FR-ROCHE-1274096

PATIENT
  Age: 83 Year
  Sex: Female

DRUGS (13)
  1. BACTRIM FORTE [Suspect]
     Indication: PRODUCT USED FOR UNKNOWN INDICATION
     Route: 048
     Dates: start: 20130704, end: 20130819
  2. MABTHERA [Suspect]
     Indication: B-CELL LYMPHOMA
     Route: 042
     Dates: start: 20130703, end: 20130731
  3. MABTHERA [Suspect]
     Indication: B-CELL LYMPHOMA
  4. LEVACT (FRANCE) [Suspect]
     Indication: B-CELL LYMPHOMA
     Route: 042
     Dates: start: 20130703, end: 20130801
  5. LEVACT (FRANCE) [Suspect]
     Indication: B-CELL LYMPHOMA
  6. MOTILIUM (FRANCE) [Suspect]
     Indication: PRODUCT USED FOR UNKNOWN INDICATION
     Route: 065
     Dates: start: 20130814, end: 20130815
  7. CIFLOX (FRANCE) [Suspect]
     Indication: PRODUCT USED FOR UNKNOWN INDICATION
     Route: 048
     Dates: start: 20130818, end: 20130819
  8. METHYLPREDNISOLONE [Concomitant]
     Route: 065
  9. TAGAMET [Concomitant]
     Route: 065
  10. ATARAX (FRANCE) [Concomitant]
     Route: 065
  11. LASILIX [Concomitant]
     Route: 065
     Dates: start: 20130801, end: 20130815
  12. AERIUS [Concomitant]
     Route: 065
     Dates: start: 20130802, end: 20130805
  13. ZINNAT (FRANCE) [Concomitant]
     Route: 065
     Dates: start: 20130818, end: 20130819

REACTIONS (3)
  - Toxic skin eruption [Recovering/Resolving]
  - Pancytopenia [Recovering/Resolving]
  - Agranulocytosis [Recovering/Resolving]
